FAERS Safety Report 13516622 (Version 2)
Quarter: 2017Q2

REPORT INFORMATION
  Report Type: Report from Study
  Country: US (occurrence: US)
  Receive Date: 20170505
  Receipt Date: 20170519
  Transmission Date: 20170830
  Serious: No
  Sender: FDA-Public Use
  Company Number: US-AMGEN-USASL2017067661

PATIENT
  Age: 53 Year
  Sex: Female

DRUGS (1)
  1. ENBREL [Suspect]
     Active Substance: ETANERCEPT
     Indication: PSORIASIS
     Dosage: 50 MG, 2 TIMES/WK
     Route: 065

REACTIONS (8)
  - Hyperhidrosis [Unknown]
  - Injection site swelling [Unknown]
  - Fatigue [Unknown]
  - Vomiting [Unknown]
  - Injection site induration [Unknown]
  - Injection site mass [Unknown]
  - Malaise [Unknown]
  - Injection site pain [Unknown]
